FAERS Safety Report 14619084 (Version 1)
Quarter: 2018Q1

REPORT INFORMATION
  Report Type: Spontaneous
  Country: GB (occurrence: GB)
  Receive Date: 20180309
  Receipt Date: 20180309
  Transmission Date: 20180509
  Serious: Yes (Hospitalization, Other)
  Sender: FDA-Public Use
  Company Number: GB-CELGENEUS-GBR-20180209131

PATIENT
  Age: 52 Year
  Sex: Female
  Weight: 91.1 kg

DRUGS (1)
  1. OTEZLA [Suspect]
     Active Substance: APREMILAST
     Indication: PSORIATIC ARTHROPATHY
     Dosage: 60 MILLIGRAM
     Route: 048
     Dates: start: 20171027, end: 20180108

REACTIONS (5)
  - Nausea [Recovering/Resolving]
  - Headache [Recovering/Resolving]
  - Paraesthesia [Unknown]
  - Musculoskeletal stiffness [Unknown]
  - Migraine [Unknown]

NARRATIVE: CASE EVENT DATE: 20180108
